FAERS Safety Report 19734674 (Version 2)
Quarter: 2022Q1

REPORT INFORMATION
  Report Type: Spontaneous
  Country: US (occurrence: US)
  Receive Date: 20210823
  Receipt Date: 20220214
  Transmission Date: 20220423
  Serious: Yes (Hospitalization, Other)
  Sender: FDA-Public Use
  Company Number: US-BAYER-2021-194063

PATIENT
  Age: 3 Decade
  Sex: Female

DRUGS (3)
  1. ASPIRIN [Suspect]
     Active Substance: ASPIRIN
     Dosage: UNK
  2. NAPROXEN SODIUM [Suspect]
     Active Substance: NAPROXEN SODIUM
     Dosage: 200 MG, QD
     Route: 048
  3. MEPOLIZUMAB [Concomitant]
     Active Substance: MEPOLIZUMAB
     Indication: Eosinophilic granulomatosis with polyangiitis
     Dosage: 300 MG

REACTIONS (6)
  - Eosinophilic granulomatosis with polyangiitis [None]
  - Nasal congestion [None]
  - Sinus headache [None]
  - Asthma [None]
  - Aspirin-exacerbated respiratory disease [Unknown]
  - Drug hypersensitivity [Unknown]
